FAERS Safety Report 22609481 (Version 1)
Quarter: 2023Q2

REPORT INFORMATION
  Report Type: Spontaneous
  Country: JP (occurrence: JP)
  Receive Date: 20230616
  Receipt Date: 20230616
  Transmission Date: 20230722
  Serious: Yes (Other)
  Sender: FDA-Public Use
  Company Number: JP-MLMSERVICE-20230605-4330979-1

PATIENT
  Age: 3 Year
  Sex: Female

DRUGS (12)
  1. CLONAZEPAM [Suspect]
     Active Substance: CLONAZEPAM
     Indication: Holoprosencephaly
  2. NITRAZEPAM [Suspect]
     Active Substance: NITRAZEPAM
     Indication: Tonic convulsion
  3. DIAZEPAM [Suspect]
     Active Substance: DIAZEPAM
     Indication: Holoprosencephaly
     Route: 054
  4. CHLORAL HYDRATE [Concomitant]
     Active Substance: CHLORAL HYDRATE
     Indication: Holoprosencephaly
     Route: 054
  5. ZONISAMIDE [Concomitant]
     Active Substance: ZONISAMIDE
     Indication: Holoprosencephaly
  6. LEVETIRACETAM [Concomitant]
     Active Substance: LEVETIRACETAM
     Indication: Holoprosencephaly
  7. DIAZEPAM [Suspect]
     Active Substance: DIAZEPAM
     Indication: Tonic convulsion
     Route: 054
  8. ZONISAMIDE [Concomitant]
     Active Substance: ZONISAMIDE
     Indication: Epilepsy
  9. LEVETIRACETAM [Concomitant]
     Active Substance: LEVETIRACETAM
     Indication: Epilepsy
  10. NITRAZEPAM [Suspect]
     Active Substance: NITRAZEPAM
     Indication: Tonic convulsion
  11. NITRAZEPAM [Suspect]
     Active Substance: NITRAZEPAM
     Indication: Holoprosencephaly
  12. CLONAZEPAM [Suspect]
     Active Substance: CLONAZEPAM
     Indication: Tonic convulsion

REACTIONS (4)
  - Diabetes insipidus [Unknown]
  - Salivary hypersecretion [Unknown]
  - Pneumonia aspiration [Unknown]
  - Condition aggravated [Unknown]
